FAERS Safety Report 5133820-9 (Version None)
Quarter: 2006Q4

REPORT INFORMATION
  Report Type: 
  Country: None (occurrence: None)
  Receive Date: 20061018
  Receipt Date: 20061005
  Transmission Date: 20070319
  Serious: Yes (Other)
  Sender: FDA-Public Use
  Company Number: 2006125175

PATIENT
  Sex: Male

DRUGS (2)
  1. BEXTRA [Suspect]
     Dosage: ORAL
     Route: 048
     Dates: start: 20050101
  2. VIOXX [Suspect]
     Dosage: ORAL
     Route: 048
     Dates: start: 20030921, end: 20040901

REACTIONS (1)
  - CEREBROVASCULAR ACCIDENT [None]
